FAERS Safety Report 4517840-0 (Version None)
Quarter: 2004Q4

REPORT INFORMATION
  Report Type: 
  Country: None (occurrence: None)
  Receive Date: 20041203
  Receipt Date: 20041020
  Transmission Date: 20050328
  Serious: Yes (Hospitalization)
  Sender: FDA-Public Use
  Company Number: DE-MERCK-0410DEU00605

PATIENT
  Age: 59 Year
  Sex: Male
  Weight: 100 kg

DRUGS (6)
  1. VIOXX [Suspect]
     Indication: CAUDA EQUINA SYNDROME
     Route: 048
     Dates: start: 20010705, end: 20020901
  2. VIOXX [Suspect]
     Route: 048
     Dates: start: 20000217, end: 20010704
  3. VIOXX [Suspect]
     Route: 048
     Dates: start: 20020901, end: 20020901
  4. VIOXX [Suspect]
     Route: 048
     Dates: start: 20020901, end: 20041011
  5. METOPROLOL SUCCINATE [Concomitant]
     Indication: HYPERTENSION
     Route: 048
  6. MAGNESIUM (UNSPECIFIED) [Concomitant]
     Indication: MUSCLE CRAMP
     Route: 065
     Dates: start: 20010813

REACTIONS (6)
  - ACUTE MYOCARDIAL INFARCTION [None]
  - ANGINA UNSTABLE [None]
  - CORONARY ARTERY DISEASE [None]
  - CORONARY ARTERY STENOSIS [None]
  - MYOCARDIAL INFARCTION [None]
  - STENT OCCLUSION [None]
